FAERS Safety Report 16086013 (Version 6)
Quarter: 2021Q1

REPORT INFORMATION
  Report Type: Spontaneous
  Country: US (occurrence: US)
  Receive Date: 20190318
  Receipt Date: 20210302
  Transmission Date: 20210419
  Serious: Yes (Other)
  Sender: FDA-Public Use
  Company Number: US-PFIZER INC-2017248645

PATIENT
  Age: 35 Year
  Sex: Male
  Weight: 74.83 kg

DRUGS (3)
  1. BENEFIX [Suspect]
     Active Substance: COAGULATION FACTOR IX RECOMBINANT HUMAN\ISOPROPYL ALCOHOL
     Dosage: 75 IU/KG (SLOW IV PUSH VIA INTERMITTENT FLOW DEVICE OR BUTTERFLY INFUSION NEEDLE)
     Route: 042
  2. BENEFIX [Suspect]
     Active Substance: COAGULATION FACTOR IX RECOMBINANT HUMAN\ISOPROPYL ALCOHOL
     Dosage: 35 IU/KG (SLOW IV PUSH VIA INTERMITTENT FLOW DEVICE OR BUTTERFLY INFUSION NEEDLE
     Route: 042
  3. BENEFIX [Suspect]
     Active Substance: COAGULATION FACTOR IX RECOMBINANT HUMAN\ISOPROPYL ALCOHOL
     Indication: FACTOR IX DEFICIENCY
     Dosage: 100 IU/KG, DAILY( INFUSE BENEFIX 7300 UNITS (+/? 10%)= 100 UNITS/KG DAILY X 1 ON DEMAND FOR BLEEDS )

REACTIONS (2)
  - Haemorrhage [Unknown]
  - Haemarthrosis [Unknown]
